FAERS Safety Report 7787070-8 (Version None)
Quarter: 2011Q3

REPORT INFORMATION
  Report Type: 
  Country: None (occurrence: None)
  Receive Date: 20110929
  Receipt Date: 20100908
  Transmission Date: 20111222
  Serious: Yes (Hospitalization, Other)
  Sender: FDA-Public Use
  Company Number: US-BAYER-201029335NA

PATIENT
  Age: 17 Year
  Sex: Female
  Weight: 95 kg

DRUGS (25)
  1. YASMIN [Suspect]
     Indication: MENSTRUAL CYCLE MANAGEMENT
     Dosage: UNK UNK, UNK
     Route: 048
     Dates: start: 20060101, end: 20080601
  2. VERAPAMIL [Concomitant]
     Indication: CHEST PAIN
     Dosage: 240 MG, UNK
     Dates: start: 20070101
  3. METOPROLOL TARTRATE [Concomitant]
     Indication: HYPERTENSION
     Dosage: UNK
     Dates: start: 20070101
  4. DROSPIRENONE AND ETHINYL ESTRADIOL [Suspect]
     Indication: ACNE
  5. TOPAMAX [Concomitant]
     Indication: MIGRAINE
     Dosage: 25 MG, QD
     Dates: start: 20070101, end: 20080101
  6. ASPIRIN [Concomitant]
  7. YASMIN [Suspect]
     Indication: ACNE
  8. YASMIN [Suspect]
     Indication: OVARIAN CYST
  9. LOPRESSOR [Concomitant]
     Indication: HYPERTENSION
     Dosage: UNK
     Dates: start: 20070101
  10. LOPRESSOR [Concomitant]
     Indication: HYPERTROPHIC CARDIOMYOPATHY
  11. VERAPAMIL [Concomitant]
     Indication: HYPERTROPHIC CARDIOMYOPATHY
  12. METFORMIN HCL [Concomitant]
     Indication: DIABETES MELLITUS
  13. VERAPAMIL [Concomitant]
     Indication: HEART RATE IRREGULAR
  14. YASMIN [Suspect]
     Indication: ORAL CONTRACEPTION
  15. SYNTHROID [Concomitant]
     Indication: HYPOTHYROIDISM
     Dosage: UNK
     Dates: start: 20060101, end: 20070101
  16. ACETAMINOPHEN [Concomitant]
  17. GLUCOPHAGE [Concomitant]
     Indication: DIABETES MELLITUS
     Dosage: UNK
     Dates: start: 20060101
  18. DROSPIRENONE AND ETHINYL ESTRADIOL [Suspect]
     Indication: MENSTRUAL CYCLE MANAGEMENT
     Dosage: UNK UNK, UNK
     Route: 048
     Dates: start: 20080901, end: 20081101
  19. DROSPIRENONE AND ETHINYL ESTRADIOL [Suspect]
     Indication: ORAL CONTRACEPTION
  20. VERAPAMIL [Concomitant]
     Indication: HYPERTENSION
  21. ZANTAC [Concomitant]
     Indication: GASTROOESOPHAGEAL REFLUX DISEASE
     Dosage: UNK
     Dates: start: 20070101
  22. DROSPIRENONE AND ETHINYL ESTRADIOL [Suspect]
     Indication: OVARIAN CYST
  23. LEVOTHYROXINE [Concomitant]
     Indication: HYPOTHYROIDISM
     Dosage: 88 MCG/24HR, UNK
     Dates: start: 20070101
  24. RANITIDINE HCL [Concomitant]
     Indication: GASTROOESOPHAGEAL REFLUX DISEASE
     Dosage: 150 MG, UNK
     Dates: start: 20070101
  25. METFORMIN HCL [Concomitant]
     Indication: OVARIAN CYST
     Dosage: 500 MG, UNK
     Dates: start: 20070101

REACTIONS (2)
  - CHOLECYSTECTOMY [None]
  - CHOLECYSTITIS CHRONIC [None]
